FAERS Safety Report 5454408-6 (Version None)
Quarter: 2007Q3

REPORT INFORMATION
  Report Type: 
  Country: None (occurrence: None)
  Receive Date: 20070917
  Receipt Date: 20060815
  Transmission Date: 20080115
  Serious: No
  Sender: FDA-Public Use
  Company Number: US-ASTRAZENECA-2006UW16291

PATIENT

DRUGS (2)
  1. SEROQUEL [Suspect]
     Route: 048
  2. CLONOPIN [Concomitant]

REACTIONS (3)
  - BLOOD TRIGLYCERIDES INCREASED [None]
  - HEPATIC ENZYME INCREASED [None]
  - LOW DENSITY LIPOPROTEIN INCREASED [None]
